FAERS Safety Report 5031440-8 (Version None)
Quarter: 2006Q2

REPORT INFORMATION
  Report Type: 
  Country: None (occurrence: None)
  Receive Date: 20060621
  Receipt Date: 20060609
  Transmission Date: 20061013
  Serious: Yes (Hospitalization)
  Sender: FDA-Public Use
  Company Number: US-KINGPHARMUSA00001-K200600747

PATIENT
  Age: 69 Year
  Sex: Female

DRUGS (10)
  1. ALTACE [Suspect]
     Indication: HYPERTENSION
     Dosage: 10 MG, QD
     Route: 048
     Dates: start: 20060503
  2. ASPIRIN [Concomitant]
     Route: 048
     Dates: start: 20060505
  3. PLAVIX [Concomitant]
     Dosage: UNK, UNK
     Route: 048
     Dates: start: 20060505
  4. LOVENOX [Suspect]
     Indication: ISCHAEMIC CARDIOMYOPATHY
     Dosage: 40 MG, QD
     Route: 058
     Dates: start: 20060503, end: 20060508
  5. ALDACTONE [Suspect]
     Indication: HYPERTENSION
     Dosage: 25 MG, QD
     Route: 048
     Dates: start: 20060503, end: 20060508
  6. DIFFU K [Suspect]
     Indication: ISCHAEMIC CARDIOMYOPATHY
     Dosage: UNK, QD
     Route: 048
     Dates: start: 20060503, end: 20060508
  7. MOPRAL [Concomitant]
     Route: 048
     Dates: start: 20060505
  8. LASILIX [Concomitant]
     Dates: start: 20060505
  9. ZOCOR [Concomitant]
     Route: 048
     Dates: start: 20060505
  10. UMULINE [Concomitant]
     Dosage: UNK, UNK
     Dates: start: 20060505

REACTIONS (7)
  - ARRHYTHMIA [None]
  - BLOOD CREATININE INCREASED [None]
  - BLOOD UREA INCREASED [None]
  - HEART RATE DECREASED [None]
  - HYPERKALAEMIA [None]
  - RENAL FAILURE ACUTE [None]
  - SYNCOPE [None]
